FAERS Safety Report 7184126-8 (Version None)
Quarter: 2010Q4

REPORT INFORMATION
  Report Type: 
  Country: None (occurrence: None)
  Receive Date: 20101222
  Receipt Date: 20101216
  Transmission Date: 20110411
  Serious: Yes (Other)
  Sender: FDA-Public Use
  Company Number: CA-US-EMD SERONO, INC.-230273J10CAN

PATIENT
  Sex: Female

DRUGS (6)
  1. REBIF [Suspect]
     Indication: MULTIPLE SCLEROSIS
     Dates: start: 20081029
  2. PANTOPRAZOLE [Concomitant]
  3. BACLOFEN [Concomitant]
  4. NAPROSYN [Concomitant]
  5. LORAZEPAM [Concomitant]
  6. JOINT MEDICATIONS [Concomitant]

REACTIONS (7)
  - BACK PAIN [None]
  - CATARACT [None]
  - FALL [None]
  - FUCHS' SYNDROME [None]
  - GLAUCOMA [None]
  - INJECTION SITE HAEMATOMA [None]
  - JOINT HYPEREXTENSION [None]
